FAERS Safety Report 9827500 (Version 1)
Quarter: 2014Q1

REPORT INFORMATION
  Report Type: Spontaneous
  Country: US (occurrence: US)
  Receive Date: 20140117
  Receipt Date: 20140117
  Transmission Date: 20141002
  Serious: No
  Sender: FDA-Public Use
  Company Number: US-BIOGENIDEC-2014BI000681

PATIENT
  Age: 58 Year
  Sex: Female

DRUGS (9)
  1. TECFIDERA [Suspect]
     Indication: MULTIPLE SCLEROSIS
     Dates: start: 201307, end: 201308
  2. TECFIDERA [Suspect]
     Indication: MULTIPLE SCLEROSIS
  3. AVONEX [Concomitant]
     Indication: MULTIPLE SCLEROSIS
     Route: 030
     Dates: start: 20050801
  4. CYMBALTA [Concomitant]
     Route: 048
     Dates: start: 201308
  5. QUERCETIN DIHYDRATE [Concomitant]
     Dates: start: 20130702
  6. VITAMIN D3 [Concomitant]
     Route: 048
     Dates: start: 20130702
  7. CALCIUM 500+D [Concomitant]
     Dates: start: 20111213
  8. GABAPENTIN [Concomitant]
     Indication: NEURALGIA
     Dates: start: 20130327
  9. VITAMIN C [Concomitant]
     Route: 048
     Dates: start: 20111213

REACTIONS (3)
  - Urticaria [Unknown]
  - Drug ineffective [Unknown]
  - Hot flush [Unknown]
